FAERS Safety Report 24025666 (Version 4)
Quarter: 2024Q3

REPORT INFORMATION
  Report Type: Report from Study
  Country: CN (occurrence: CN)
  Receive Date: 20240628
  Receipt Date: 20240710
  Transmission Date: 20241017
  Serious: No
  Sender: ROCHE
  Company Number: CN-ROCHE-3394460

PATIENT
  Age: 69 Year
  Sex: Male
  Weight: 79.0 kg

DRUGS (9)
  1. ALECTINIB [Suspect]
     Active Substance: ALECTINIB
     Indication: Lung cancer metastatic
     Route: 048
     Dates: start: 20211028
  2. CANDESARTAN [Concomitant]
     Active Substance: CANDESARTAN
     Indication: Hypertension
     Route: 048
  3. CONFORMAL [Concomitant]
     Indication: Prostatitis
     Dates: start: 2017
  4. ISOSORBIDE DINITRATE [Concomitant]
     Active Substance: ISOSORBIDE DINITRATE
  5. ASPIRIN [Concomitant]
     Active Substance: ASPIRIN
  6. BICYCLOL [Concomitant]
     Active Substance: BICYCLOL
     Route: 048
  7. RIVAROXABAN [Concomitant]
     Active Substance: RIVAROXABAN
     Route: 048
     Dates: start: 2022
  8. BICYCLOL [Concomitant]
     Active Substance: BICYCLOL
     Route: 048
     Dates: start: 202111
  9. PHOSPHOLIPID [Concomitant]
     Active Substance: PHOSPHOLIPID
     Route: 048
     Dates: start: 2022

REACTIONS (1)
  - Pyrexia [Recovered/Resolved]

NARRATIVE: CASE EVENT DATE: 20230722
